FAERS Safety Report 9917675 (Version 1)
Quarter: 2014Q1

REPORT INFORMATION
  Report Type: Spontaneous
  Country: US (occurrence: US)
  Receive Date: 20140221
  Receipt Date: 20140221
  Transmission Date: 20141002
  Serious: Yes (Death)
  Sender: FDA-Public Use
  Company Number: US-MALLINCKRODT-T201401352

PATIENT
  Age: 34 Year
  Sex: Male

DRUGS (2)
  1. EXALGO [Suspect]
     Indication: PAIN
     Dosage: 16 MG, BID
     Route: 048
     Dates: start: 20130820
  2. DILAUDID [Suspect]
     Indication: BREAKTHROUGH PAIN
     Dosage: 8 MG, TID
     Route: 065

REACTIONS (1)
  - Death [Fatal]
